FAERS Safety Report 14746391 (Version 2)
Quarter: 2018Q2

REPORT INFORMATION
  Report Type: Spontaneous
  Country: US (occurrence: US)
  Receive Date: 20180411
  Receipt Date: 20180411
  Transmission Date: 20180711
  Serious: Yes (Other)
  Sender: FDA-Public Use
  Company Number: US-BAYER-2018-061287

PATIENT
  Age: 9 Year
  Sex: Female

DRUGS (2)
  1. RID SHAMPOO [Suspect]
     Active Substance: PIPERONYL BUTOXIDE\PYRETHRIN I
     Indication: LICE INFESTATION
     Dosage: UNK
     Dates: start: 20180317, end: 20180317
  2. NIX [Suspect]
     Active Substance: PERMETHRIN
     Dosage: UNK
     Dates: start: 20180324, end: 20180324

REACTIONS (2)
  - Drug ineffective [Unknown]
  - Seizure [Recovered/Resolved]

NARRATIVE: CASE EVENT DATE: 20180326
